FAERS Safety Report 6492211-9 (Version None)
Quarter: 2009Q4

REPORT INFORMATION
  Report Type: 
  Country: None (occurrence: None)
  Receive Date: 20091214
  Receipt Date: 20090826
  Transmission Date: 20100525
  Serious: Yes (Hospitalization)
  Sender: FDA-Public Use
  Company Number: A0805766A

PATIENT
  Age: 71 Year
  Sex: Male

DRUGS (3)
  1. AVANDARYL [Suspect]
     Dosage: 4MG TWICE PER DAY
     Route: 048
     Dates: start: 20060406, end: 20070228
  2. AVANDIA [Suspect]
     Dosage: 8MG PER DAY
     Route: 048
     Dates: start: 20060602, end: 20061001
  3. AVANDAMET [Suspect]
     Dosage: 1000MG TWICE PER DAY
     Route: 048
     Dates: start: 20070228, end: 20070405

REACTIONS (2)
  - CARDIAC FAILURE CONGESTIVE [None]
  - FLUID RETENTION [None]
